FAERS Safety Report 10418819 (Version 3)
Quarter: 2015Q1

REPORT INFORMATION
  Report Type: Spontaneous
  Country: US (occurrence: None)
  Receive Date: 20140625
  Receipt Date: 20150129
  Transmission Date: 20150720
  Serious: Yes (Other)
  Sender: FDA-Public Use
  Company Number: A-US2014-97776

PATIENT
  Age: 75 Year
  Sex: Female
  Weight: 88.4 kg

DRUGS (4)
  1. OPSUMIT [Suspect]
     Active Substance: MACITENTAN
     Indication: PULMONARY ARTERIAL HYPERTENSION
     Route: 048
     Dates: start: 20140112
  2. TYVASO (TREPROSTINIL SODIUM) [Concomitant]
     Dosage: 18-54 MICROGRAMS, RESPIRATORY
     Dates: start: 20120803
  3. RIOCIGUAT (RIOCIGUAT) [Concomitant]
     Active Substance: RIOCIGUAT
     Route: 048
  4. ASPIRIN (ACETYLSALICYLIC ACID) [Concomitant]
     Active Substance: ASPIRIN

REACTIONS (6)
  - Dyspnoea exertional [None]
  - Feeling abnormal [None]
  - Nausea [None]
  - Blood pressure diastolic decreased [None]
  - Hypotension [None]
  - Dizziness [None]
